FAERS Safety Report 4395542-1 (Version None)
Quarter: 2004Q3

REPORT INFORMATION
  Report Type: 
  Country: None (occurrence: None)
  Receive Date: 20040709
  Receipt Date: 20040625
  Transmission Date: 20050211
  Serious: Yes (Other)
  Sender: FDA-Public Use
  Company Number: US-JNJFOC-20040608570

PATIENT
  Sex: Male

DRUGS (1)
  1. INFLIXIMAB     (INFLIXIMAB, RECOMBINANT) [Suspect]
     Indication: PSORIATIC ARTHROPATHY
     Dosage: 6TH INFUSION

REACTIONS (1)
  - LISTERIOSIS [None]
